FAERS Safety Report 9378354 (Version 1)
Quarter: 2013Q3

REPORT INFORMATION
  Report Type: Report from Study
  Country: JP (occurrence: JP)
  Receive Date: 20130701
  Receipt Date: 20130701
  Transmission Date: 20140515
  Serious: Yes (Other)
  Sender: FDA-Public Use
  Company Number: JP-JNJFOC-20120520865

PATIENT
  Age: 62 Year
  Sex: Male
  Weight: 57 kg

DRUGS (14)
  1. SIMPONI [Suspect]
     Indication: RHEUMATOID ARTHRITIS
     Route: 058
     Dates: start: 20120824
  2. SIMPONI [Suspect]
     Indication: RHEUMATOID ARTHRITIS
     Route: 058
     Dates: start: 20120119
  3. SIMPONI [Suspect]
     Indication: RHEUMATOID ARTHRITIS
     Route: 058
     Dates: start: 20111224
  4. SIMPONI [Suspect]
     Indication: RHEUMATOID ARTHRITIS
     Route: 058
     Dates: start: 20111126
  5. ETANERCEPT [Suspect]
     Indication: RHEUMATOID ARTHRITIS
  6. ETANERCEPT [Suspect]
     Indication: RHEUMATOID ARTHRITIS
     Dates: start: 201111, end: 201111
  7. METHOTREXATE [Concomitant]
     Indication: RHEUMATOID ARTHRITIS
     Route: 048
  8. PREDNISOLONE [Concomitant]
     Indication: RHEUMATOID ARTHRITIS
  9. CELECOXIB [Concomitant]
     Indication: RHEUMATOID ARTHRITIS
     Route: 048
  10. EUGLUCON [Concomitant]
     Route: 048
  11. SEIBULE [Concomitant]
     Route: 048
  12. ONEALFA [Concomitant]
     Route: 048
  13. LANIZAC [Concomitant]
     Route: 048
  14. FOLIAMIN [Concomitant]
     Route: 048

REACTIONS (1)
  - Bronchopneumonia [Recovered/Resolved]
